FAERS Safety Report 8213765-8 (Version None)
Quarter: 2012Q1

REPORT INFORMATION
  Report Type: 
  Country: None (occurrence: None)
  Receive Date: 20120316
  Receipt Date: 20120309
  Transmission Date: 20120608
  Serious: Yes (Hospitalization)
  Sender: FDA-Public Use
  Company Number: PHHY2012TW008105

PATIENT
  Sex: Female
  Weight: 54 kg

DRUGS (9)
  1. ACETYLCYSTEIN AL [Concomitant]
     Dosage: 1 DF, BID
  2. THEOPHYLLINE [Concomitant]
     Dosage: 1 DF, BID
  3. FUROSEMIDE [Concomitant]
  4. OXYGEN [Concomitant]
  5. TASIGNA [Suspect]
     Indication: CHRONIC MYELOID LEUKAEMIA
     Dosage: 200 MG, BID
     Route: 048
     Dates: start: 20100612
  6. CEFTIBUTEN [Concomitant]
     Dosage: 2 DF, Q12H
  7. POTASSIUM CHLORIDE [Concomitant]
     Dosage: 1 DF, TID
  8. COUGH MIXTURE A [Concomitant]
     Dosage: 120 ML, QID
  9. PREDNISOLONE [Concomitant]
     Dosage: 2 DF, TID

REACTIONS (13)
  - HYPERCAPNIA [None]
  - CHRONIC OBSTRUCTIVE PULMONARY DISEASE [None]
  - PYREXIA [None]
  - CARDIOMEGALY [None]
  - RESPIRATORY FAILURE [None]
  - SPUTUM DISCOLOURED [None]
  - COUGH [None]
  - LUNG INFILTRATION [None]
  - PNEUMONIA [None]
  - C-REACTIVE PROTEIN INCREASED [None]
  - DYSPNOEA [None]
  - BLOOD PRESSURE INCREASED [None]
  - RESPIRATORY ACIDOSIS [None]
